FAERS Safety Report 20687183 (Version 2)
Quarter: 2022Q2

REPORT INFORMATION
  Report Type: Spontaneous
  Country: JP (occurrence: JP)
  Receive Date: 20220407
  Receipt Date: 20220420
  Transmission Date: 20220721
  Serious: Yes (Death, Other)
  Sender: FDA-Public Use
  Company Number: JP-NBI-J202206067BIPI

PATIENT
  Age: 6 Decade
  Sex: Male

DRUGS (1)
  1. JARDIANCE [Suspect]
     Active Substance: EMPAGLIFLOZIN
     Indication: Diabetes mellitus
     Route: 048

REACTIONS (5)
  - Road traffic accident [Fatal]
  - Injury [Fatal]
  - Shock [Fatal]
  - Septic shock [Fatal]
  - Fournier^s gangrene [Fatal]

NARRATIVE: CASE EVENT DATE: 20220401
